FAERS Safety Report 12791904 (Version 5)
Quarter: 2019Q1

REPORT INFORMATION
  Report Type: Spontaneous
  Country: PT (occurrence: PT)
  Receive Date: 20160929
  Receipt Date: 20190131
  Transmission Date: 20190417
  Serious: Yes (Other)
  Sender: FDA-Public Use
  Company Number: PT-PFIZER INC-2016451610

PATIENT
  Age: 73 Year
  Sex: Female

DRUGS (2)
  1. FENTANYL. [Concomitant]
     Active Substance: FENTANYL
     Indication: INGUINAL HERNIA REPAIR
     Dosage: (10 MUG), UNK
     Route: 008
  2. BUPIVACAINE HCL [Suspect]
     Active Substance: BUPIVACAINE HYDROCHLORIDE
     Indication: INGUINAL HERNIA REPAIR
     Dosage: 5 MG, UNK
     Route: 008

REACTIONS (1)
  - Cauda equina syndrome [Recovering/Resolving]
